FAERS Safety Report 16994494 (Version 1)
Quarter: 2019Q4

REPORT INFORMATION
  Report Type: Spontaneous
  Country: GB (occurrence: GB)
  Receive Date: 20191105
  Receipt Date: 20191105
  Transmission Date: 20200122
  Serious: Yes (Other)
  Sender: FDA-Public Use
  Company Number: GB-CHEPLA-C20192825

PATIENT
  Age: 21 Year

DRUGS (5)
  1. GANCICLOVIR. [Suspect]
     Active Substance: GANCICLOVIR
     Route: 065
  2. MEROPENEM. [Suspect]
     Active Substance: MEROPENEM
     Route: 065
  3. CEFTAZIDIME PENTAHYDRATE, AVIBACTAM SODIUM [Suspect]
     Active Substance: AVIBACTAM SODIUM\CEFTAZIDIME
  4. VANCOMYCIN HYDROCHLORIDE. [Suspect]
     Active Substance: VANCOMYCIN HYDROCHLORIDE
  5. AMIKACIN SULFATE. [Suspect]
     Active Substance: AMIKACIN SULFATE
     Route: 065

REACTIONS (5)
  - Sepsis [Unknown]
  - Drug ineffective [Unknown]
  - Aspiration [Unknown]
  - Coma scale abnormal [Unknown]
  - Pyrexia [Unknown]
